FAERS Safety Report 15883347 (Version 1)
Quarter: 2019Q1

REPORT INFORMATION
  Report Type: Spontaneous
  Country: DE (occurrence: DE)
  Receive Date: 20190129
  Receipt Date: 20190129
  Transmission Date: 20190417
  Serious: Yes (Hospitalization)
  Sender: FDA-Public Use
  Company Number: DE-ACCORD-103765

PATIENT
  Age: 75 Year
  Sex: Male

DRUGS (27)
  1. METOPROLOL. [Suspect]
     Active Substance: METOPROLOL
     Indication: PRODUCT USED FOR UNKNOWN INDICATION
     Dosage: 95 MG, 1-0-0-1
  2. HYDROMORPHONE/HYDROMORPHONE HYDROCHLORIDE [Suspect]
     Active Substance: HYDROMORPHONE
     Indication: PRODUCT USED FOR UNKNOWN INDICATION
     Dosage: 8 MG, 1-0-1-0
  3. DIGITOXIN [Concomitant]
     Active Substance: DIGITOXIN
     Dosage: 0.07 MG, 1-0-0-0
  4. PANTOPRAZOLE [Concomitant]
     Active Substance: PANTOPRAZOLE
     Dosage: 40 MG, 1-0-0-0,20 MG, 1-0-0-0
  5. ELIQUIS [Concomitant]
     Active Substance: APIXABAN
     Dosage: 2.5 MG, 1-0-1-0
  6. FLUTIFORM [Concomitant]
     Active Substance: FLUTICASONE PROPIONATE\FORMOTEROL FUMARATE
     Dosage: 10/250 MICROG, 2-0-2-0
     Route: 055
  7. ACC 600 [Concomitant]
     Dosage: 600 MG, 1-0-0-0
  8. ATROVENT [Concomitant]
     Active Substance: IPRATROPIUM BROMIDE
     Dosage: 0.5 MG, 1-1-1-1,15 STROKES, 15-15-15-0
     Route: 055
  9. SPIRIVA [Concomitant]
     Active Substance: TIOTROPIUM BROMIDE MONOHYDRATE
     Dosage: 18 MICROG, 1-0-1-0
     Route: 055
  10. KALINOR [Concomitant]
     Dosage: NK MG, 1-1-0-0
  11. SANDOCAL D [Concomitant]
     Dosage: 1000/880 IE, 1-0-0-0
  12. FUROSEMIDE. [Suspect]
     Active Substance: FUROSEMIDE
     Indication: PRODUCT USED FOR UNKNOWN INDICATION
     Dosage: 40 MG, 2-2-0-0
  13. LEVEMIR [Concomitant]
     Active Substance: INSULIN DETEMIR
     Dosage: NK IE, 20-0-15-0,34 IE, 1-0-1-0
  14. METAMIZOLE SODIUM [Concomitant]
     Active Substance: METAMIZOLE SODIUM
     Dosage: 500 MG/ML, 20-20-20-20
  15. DIAZEPAM. [Concomitant]
     Active Substance: DIAZEPAM
     Dosage: 10 MG/ML, 0-0-0-4, DROPS
  16. ROFLUMILAST. [Concomitant]
     Active Substance: ROFLUMILAST
     Dosage: 0.5 MG, 1-0-0-0
  17. SULTANOL [Concomitant]
     Active Substance: ALBUTEROL SULFATE
     Dosage: NK MG, NEED
  18. MIRTAZAPINE. [Concomitant]
     Active Substance: MIRTAZAPINE
     Dosage: 30 MG, 0-0-0-1,15 MG, 0-0-0-1
  19. AMIODARONE [Concomitant]
     Active Substance: AMIODARONE
     Dosage: 100 MG, 1-0-0-0
  20. FENTANYL. [Concomitant]
     Active Substance: FENTANYL
     Dosage: 0.0125 MICRO/ H, CHANGE EVERY 3 D
     Route: 062
  21. MOVICOL [Concomitant]
     Active Substance: POLYETHYLENE GLYCOL 3350\POTASSIUM CHLORIDE\SODIUM BICARBONATE\SODIUM CHLORIDE
     Dosage: NK MG, 1-1-0-0
  22. PREDNISOLONE. [Concomitant]
     Active Substance: PREDNISOLONE
     Dosage: 10 MG, 1-0-0.5-0
  23. XIPAMIDE [Suspect]
     Active Substance: XIPAMIDE
     Indication: PRODUCT USED FOR UNKNOWN INDICATION
     Dosage: 40 MG, 1-0-0-0,10 MG, 1-1-0-0
  24. CINEOLE [Concomitant]
     Active Substance: EUCALYPTOL
     Dosage: 100 MG, 2-0-2-0
  25. NOVORAPID [Concomitant]
     Active Substance: INSULIN ASPART
     Dosage: NK IE, NACH BZ
  26. TAMSULOSIN/TAMSULOSIN HYDROCHLORIDE [Concomitant]
     Dosage: 0.4 MG, 1-0-0-0
  27. ATORVASTATIN [Concomitant]
     Active Substance: ATORVASTATIN
     Dosage: 20 MG, 0-0-1-0

REACTIONS (6)
  - Dyspnoea [Unknown]
  - Hypokalaemia [Unknown]
  - Product prescribing error [Unknown]
  - Acute kidney injury [Unknown]
  - Chronic obstructive pulmonary disease [Unknown]
  - Tachypnoea [Unknown]
